FAERS Safety Report 8764521 (Version 2)
Quarter: 2012Q4

REPORT INFORMATION
  Report Type: 
  Country: CN (occurrence: CN)
  Receive Date: 20120831
  Receipt Date: 20120906
  Transmission Date: 20130627
  Serious: Yes (Other)
  Sender: FDA-Public Use
  Company Number: CN-BAXTER-2012BAX015742

PATIENT

DRUGS (5)
  1. ENDOXAN 1G [Suspect]
     Indication: LUPUS NEPHRITIS
     Route: 042
  2. PREDNISONE [Suspect]
     Indication: LUPUS NEPHRITIS
     Route: 048
  3. PREDNISONE [Suspect]
     Route: 048
  4. PREDNISONE [Suspect]
     Dosage: 10-15 MG/DAY
     Route: 048
  5. AZATHIOPRINE [Suspect]
     Indication: LUPUS NEPHRITIS

REACTIONS (1)
  - Renal failure chronic [Unknown]
